FAERS Safety Report 6439580-3 (Version None)
Quarter: 2009Q4

REPORT INFORMATION
  Report Type: 
  Country: None (occurrence: None)
  Receive Date: 20091113
  Receipt Date: 20091106
  Transmission Date: 20100525
  Serious: Yes (Hospitalization)
  Sender: FDA-Public Use
  Company Number: B0598764A

PATIENT
  Sex: Female
  Weight: 48.8 kg

DRUGS (3)
  1. TOPOTECAN [Suspect]
     Dosage: 1.155MG CYCLIC
     Route: 042
     Dates: start: 20090921
  2. CISPLATIN [Suspect]
     Route: 042
     Dates: start: 20090921
  3. DURAGESIC-100 [Concomitant]
     Indication: PAIN
     Route: 058
     Dates: start: 20090901

REACTIONS (3)
  - ANAEMIA [None]
  - ILEUS [None]
  - VAGINAL HAEMORRHAGE [None]
